FAERS Safety Report 6916925-9 (Version None)
Quarter: 2010Q3

REPORT INFORMATION
  Report Type: 
  Country: None (occurrence: None)
  Receive Date: 20100810
  Receipt Date: 20100802
  Transmission Date: 20110219
  Serious: Yes (Other)
  Sender: FDA-Public Use
  Company Number: US-JNJFOC-20100801315

PATIENT
  Sex: Female
  Weight: 68.04 kg

DRUGS (8)
  1. FENTANYL CITRATE [Suspect]
     Indication: SPINAL DISORDER
     Route: 062
  2. FENTANYL CITRATE [Suspect]
     Route: 062
  3. LIPITOR [Concomitant]
     Indication: BLOOD CHOLESTEROL
     Route: 048
  4. ASPIRIN [Concomitant]
     Indication: CARDIAC DISORDER
     Route: 048
  5. CARVEDILOL [Concomitant]
     Indication: CARDIAC DISORDER
     Route: 048
  6. MICRO-K [Concomitant]
     Indication: CARDIAC DISORDER
     Route: 048
  7. LASIX [Concomitant]
     Indication: FLUID RETENTION
     Route: 048
  8. GABAPENTIN [Concomitant]
     Route: 048

REACTIONS (5)
  - BODY HEIGHT DECREASED [None]
  - DRUG ADMINISTERED AT INAPPROPRIATE SITE [None]
  - HOT FLUSH [None]
  - MUSCLE SPASMS [None]
  - WRONG TECHNIQUE IN DRUG USAGE PROCESS [None]
